FAERS Safety Report 8796610 (Version 5)
Quarter: 2013Q3

REPORT INFORMATION
  Report Type: Report from Study
  Country: FR (occurrence: FR)
  Receive Date: 20120920
  Receipt Date: 20130903
  Transmission Date: 20140515
  Serious: No
  Sender: FDA-Public Use
  Company Number: FR-ROCHE-1116752

PATIENT
  Age: 45 Year
  Sex: Male
  Weight: 80 kg

DRUGS (9)
  1. TOCILIZUMAB [Suspect]
     Indication: RHEUMATOID ARTHRITIS
     Route: 042
     Dates: start: 20120321
  2. TOCILIZUMAB [Suspect]
     Route: 042
     Dates: start: 20120806
  3. TOCILIZUMAB [Suspect]
     Route: 042
     Dates: start: 20120709
  4. TOCILIZUMAB [Suspect]
     Route: 042
     Dates: start: 20120611
  5. TOCILIZUMAB [Suspect]
     Route: 042
     Dates: start: 20120102
  6. CORTANCYL [Concomitant]
     Indication: RHEUMATOID ARTHRITIS
     Route: 048
     Dates: start: 2009
  7. ARAVA [Concomitant]
     Indication: RHEUMATOID ARTHRITIS
     Route: 048
     Dates: start: 2009
  8. INEXIUM [Concomitant]
     Indication: ABDOMINAL PAIN UPPER
     Route: 048
     Dates: start: 2009
  9. ZALDIAR [Concomitant]
     Route: 048
     Dates: start: 2010

REACTIONS (2)
  - Colitis ulcerative [Not Recovered/Not Resolved]
  - Rectal haemorrhage [Recovered/Resolved]
